FAERS Safety Report 6877734-2 (Version None)
Quarter: 2010Q3

REPORT INFORMATION
  Report Type: 
  Country: None (occurrence: None)
  Receive Date: 20100727
  Receipt Date: 20100712
  Transmission Date: 20110219
  Serious: No
  Sender: FDA-Public Use
  Company Number: US-ABBOTT-10P-163-0654163-00

PATIENT
  Sex: Female
  Weight: 62.652 kg

DRUGS (6)
  1. SYNTHROID [Suspect]
     Indication: HYPOTHYROIDISM
     Route: 048
     Dates: start: 20100501, end: 20100501
  2. SYNTHROID [Suspect]
     Indication: ANTI-THYROID ANTIBODY POSITIVE
     Dosage: 1/2 OF 25MCG TABLET DAILY IN AM
     Dates: start: 20100501, end: 20100501
  3. SYNTHROID [Suspect]
     Dates: start: 20100601, end: 20100701
  4. SYNTHROID [Suspect]
     Dosage: 1/2 OF 25MCG TABLET DAILY IN AM
     Dates: start: 20100701
  5. PREVACID [Concomitant]
     Indication: PRODUCT USED FOR UNKNOWN INDICATION
  6. CALTRATE WITH VITAMIN D [Concomitant]
     Indication: PRODUCT USED FOR UNKNOWN INDICATION

REACTIONS (7)
  - ANTI-THYROID ANTIBODY POSITIVE [None]
  - BLOOD THYROID STIMULATING HORMONE INCREASED [None]
  - DEHYDRATION [None]
  - HYPERHIDROSIS [None]
  - INCORRECT DOSE ADMINISTERED [None]
  - OVERDOSE [None]
  - PALPITATIONS [None]
